FAERS Safety Report 4691387-3 (Version None)
Quarter: 2005Q2

REPORT INFORMATION
  Report Type: 
  Country: None (occurrence: None)
  Receive Date: 20050615
  Receipt Date: 20050531
  Transmission Date: 20051028
  Serious: Yes (Hospitalization)
  Sender: FDA-Public Use
  Company Number: 2005081862

PATIENT
  Sex: Female

DRUGS (1)
  1. VISTARIL [Suspect]
     Indication: ANAESTHESIA
     Dosage: INTRAMUSCULAR
     Route: 030
     Dates: start: 20050501

REACTIONS (1)
  - INJECTION SITE NECROSIS [None]
